FAERS Safety Report 21715660 (Version 1)
Quarter: 2022Q4

REPORT INFORMATION
  Report Type: Spontaneous
  Country: DE (occurrence: DE)
  Receive Date: 20221212
  Receipt Date: 20221212
  Transmission Date: 20230113
  Serious: Yes (Hospitalization)
  Sender: FDA-Public Use
  Company Number: DE-ADRED-05229-01

PATIENT
  Age: 68 Year
  Sex: Male

DRUGS (13)
  1. VINORELBINE [Suspect]
     Active Substance: VINORELBINE TARTRATE
     Indication: Product used for unknown indication
     Dosage: LAST 27-DEC-2019
     Route: 065
  2. CISPLATIN [Suspect]
     Active Substance: CISPLATIN
     Indication: Product used for unknown indication
     Dosage: LAST 14-DEC-2019
     Route: 065
  3. ALLOPURINOL [Concomitant]
     Active Substance: ALLOPURINOL
     Dosage: 300 MILLIGRAM, 300 MG, 0-0-1-0, TABLET
     Route: 048
  4. ATORVASTATIN [Concomitant]
     Active Substance: ATORVASTATIN
     Dosage: 20 MILLIGRAM, 20 MG, 0-0-1-0, TABLET
     Route: 048
  5. METFORMIN\SITAGLIPTIN [Concomitant]
     Active Substance: METFORMIN\SITAGLIPTIN
     Dosage: 1000|50 MG, 1-0-1-0, TABLET
     Route: 048
  6. INSULIN HUMAN [Concomitant]
     Active Substance: INSULIN HUMAN
     Dosage: 300 INTERNATIONAL UNIT, 300 IE, BY VALUE
     Route: 058
  7. TAMSULOSIN [Concomitant]
     Active Substance: TAMSULOSIN
     Dosage: 0.4 MILLIGRAM, 0.4 MG, 1-0-0-0, TABLET
     Route: 048
  8. METAMIZOL [Concomitant]
     Active Substance: METAMIZOLE SODIUM
     Dosage: 500 MILLIGRAM, 500 MG, 1-1-1-0, TABLET
     Route: 048
  9. ALBUTEROL [Concomitant]
     Active Substance: ALBUTEROL
     Dosage: 1.25 MG, 1-1-1-0, AMPOULES
  10. BISOPROLOL [Concomitant]
     Active Substance: BISOPROLOL
     Dosage: 10 MILLIGRAM, 10 MG, 1-0-0-0, TABLET
     Route: 048
  11. HYDROCHLOROTHIAZIDE\IRBESARTAN [Concomitant]
     Active Substance: HYDROCHLOROTHIAZIDE\IRBESARTAN
     Dosage: 12.5|300 MG, 0-0-1-0, TABLET
     Route: 048
  12. BEZAFIBRATE [Concomitant]
     Active Substance: BEZAFIBRATE
     Dosage: 400 MILLIGRAM, 400 MG, 0-0-1-0, EXTENDED-RELEASE TABLETS
     Route: 048
  13. HYDROMORPHONE [Concomitant]
     Active Substance: HYDROMORPHONE
     Dosage: 4 MILLIGRAM, 4 MG, 1-0-0SUSTAINED-RELEASE CAPSULES
     Route: 048

REACTIONS (8)
  - Fall [Unknown]
  - Balance disorder [Unknown]
  - Weight increased [Unknown]
  - Brain stem ischaemia [Unknown]
  - General physical health deterioration [Unknown]
  - Disturbance in attention [Unknown]
  - Dizziness [Unknown]
  - Fatigue [Unknown]
